FAERS Safety Report 8013073-4 (Version None)
Quarter: 2011Q4

REPORT INFORMATION
  Report Type: 
  Country: None (occurrence: None)
  Receive Date: 20111229
  Receipt Date: 20111227
  Transmission Date: 20120403
  Serious: No
  Sender: FDA-Public Use
  Company Number: US-BAYER-2011-123892

PATIENT
  Age: 59 Year
  Sex: Male
  Weight: 86 kg

DRUGS (1)
  1. ASPIRIN [Suspect]
     Indication: PAIN
     Dosage: 2 DF, PRN
     Dates: start: 20111224, end: 20111224

REACTIONS (1)
  - ABDOMINAL DISCOMFORT [None]
